FAERS Safety Report 7688560-9 (Version None)
Quarter: 2011Q3

REPORT INFORMATION
  Report Type: 
  Country: None (occurrence: None)
  Receive Date: 20110817
  Receipt Date: 20110817
  Transmission Date: 20111222
  Serious: Yes (Death, Other)
  Sender: FDA-Public Use
  Company Number: None

PATIENT
  Age: 38 Year
  Sex: Male
  Weight: 90.718 kg

DRUGS (2)
  1. SEROQUEL [Suspect]
     Indication: DEPRESSION
     Dates: start: 20090103, end: 20091022
  2. SEROQUEL [Suspect]
     Indication: ANXIETY
     Dates: start: 20090103, end: 20091022

REACTIONS (14)
  - BLOOD GLUCOSE INCREASED [None]
  - ROAD TRAFFIC ACCIDENT [None]
  - IMPAIRED WORK ABILITY [None]
  - LOSS OF CONSCIOUSNESS [None]
  - VISUAL FIELD DEFECT [None]
  - MALAISE [None]
  - ASTHENIA [None]
  - INCOHERENT [None]
  - INSOMNIA [None]
  - LOSS OF EMPLOYMENT [None]
  - DIZZINESS [None]
  - CONVULSION [None]
  - VOMITING [None]
  - HYPERHIDROSIS [None]
